FAERS Safety Report 13922256 (Version 1)
Quarter: 2017Q3

REPORT INFORMATION
  Report Type: Report from Study
  Country: US (occurrence: US)
  Receive Date: 20170830
  Receipt Date: 20170830
  Transmission Date: 20171127
  Serious: Yes (Other)
  Sender: FDA-Public Use
  Company Number: US-EMD SERONO-E2B_80057963

PATIENT
  Sex: Female

DRUGS (2)
  1. REBIF [Suspect]
     Active Substance: INTERFERON BETA-1A
     Indication: MULTIPLE SCLEROSIS
     Route: 058
     Dates: start: 20160705, end: 20170724
  2. REBIF [Suspect]
     Active Substance: INTERFERON BETA-1A
     Indication: PRIMARY PROGRESSIVE MULTIPLE SCLEROSIS

REACTIONS (4)
  - Off label use [Recovered/Resolved]
  - Primary progressive multiple sclerosis [Unknown]
  - Seizure [Not Recovered/Not Resolved]
  - Accident at home [Unknown]
